FAERS Safety Report 5214968-7 (Version None)
Quarter: 2006Q4

REPORT INFORMATION
  Report Type: 
  Country: None (occurrence: None)
  Receive Date: 20061108
  Receipt Date: 20060621
  Transmission Date: 20070319
  Serious: Yes (Other)
  Sender: FDA-Public Use
  Company Number: US200606005062

PATIENT
  Age: 56 Year
  Sex: Female
  Weight: 137.4 kg

DRUGS (15)
  1. PROZAC [Suspect]
     Indication: DEPRESSION
     Dates: start: 19980101, end: 19980101
  2. CYMBALTA [Suspect]
     Indication: DEPRESSION
     Dosage: 60 MG; SEE IMAGE
     Dates: start: 20060416, end: 20060620
  3. CYMBALTA [Suspect]
     Indication: DEPRESSION
     Dosage: 60 MG; SEE IMAGE
     Dates: start: 20060621
  4. ATENLOL (ATENOLOL) [Concomitant]
  5. ACTOS/USA/ (PIOGLITAZONE HYDROCHLORIDE) [Concomitant]
  6. AVALIDE [Concomitant]
  7. ASPIRIN [Concomitant]
  8. ENALAPRIL MALEATE [Concomitant]
  9. METFORMIN (METFORMIN) [Concomitant]
  10. LIPITOR [Concomitant]
  11. PROTONIX [Concomitant]
  12. TRICOR [Concomitant]
  13. TRAVATAN [Concomitant]
  14. TRUSOPT /GFR/ (DORZOLAMIDE HYDROCHLORIDE) [Concomitant]
  15. ALBUTEROL [Concomitant]

REACTIONS (9)
  - CONSTIPATION [None]
  - DIZZINESS [None]
  - DRY MOUTH [None]
  - LIMB DISCOMFORT [None]
  - LOSS OF CONSCIOUSNESS [None]
  - MUSCULAR WEAKNESS [None]
  - NAUSEA [None]
  - VOMITING [None]
  - WEIGHT DECREASED [None]
